FAERS Safety Report 9176762 (Version 1)
Quarter: 2013Q1

REPORT INFORMATION
  Report Type: Spontaneous
  Country: TR (occurrence: TR)
  Receive Date: 20130321
  Receipt Date: 20130321
  Transmission Date: 20140127
  Serious: Yes (Death)
  Sender: FDA-Public Use
  Company Number: TR-PFIZER INC-2013090211

PATIENT
  Sex: 0

DRUGS (1)
  1. CRIZOTINIB [Suspect]

REACTIONS (3)
  - Death [Fatal]
  - Visual impairment [Unknown]
  - Nausea [Unknown]
